FAERS Safety Report 6806521-6 (Version None)
Quarter: 2010Q2

REPORT INFORMATION
  Report Type: 
  Country: None (occurrence: None)
  Receive Date: 20100629
  Receipt Date: 20080424
  Transmission Date: 20101027
  Serious: No
  Sender: FDA-Public Use
  Company Number: US-PFIZER INC-2008020432

PATIENT
  Sex: Male
  Weight: 102.51 kg

DRUGS (6)
  1. TIKOSYN [Suspect]
     Indication: ARRHYTHMIA
     Route: 048
     Dates: start: 20080218
  2. WARFARIN SODIUM [Concomitant]
  3. PEPCID [Concomitant]
  4. ZIAC [Concomitant]
  5. VYTORIN [Concomitant]
  6. LANOXIN [Concomitant]

REACTIONS (1)
  - NEUROPATHY PERIPHERAL [None]
